FAERS Safety Report 6580067-5 (Version None)
Quarter: 2010Q1

REPORT INFORMATION
  Report Type: 
  Country: None (occurrence: None)
  Receive Date: 20100212
  Receipt Date: 20100205
  Transmission Date: 20100710
  Serious: Yes (Hospitalization)
  Sender: FDA-Public Use
  Company Number: JP-MERCK-1002USA01092

PATIENT
  Age: 38 Year
  Sex: Female

DRUGS (5)
  1. TRUSOPT [Suspect]
     Indication: GLAUCOMA
     Route: 047
     Dates: start: 20100113, end: 20100131
  2. TIMOPTOL [Suspect]
     Indication: GLAUCOMA
     Route: 047
     Dates: start: 20100113, end: 20100131
  3. FLUMETHOLON [Concomitant]
     Route: 047
     Dates: start: 20000101
  4. CRAVIT [Concomitant]
     Route: 047
     Dates: start: 20000101
  5. HYALEIN [Concomitant]
     Route: 047
     Dates: start: 20000101

REACTIONS (1)
  - CORNEAL OEDEMA [None]
